FAERS Safety Report 11002625 (Version 2)
Quarter: 2015Q2

REPORT INFORMATION
  Report Type: Spontaneous
  Country: US (occurrence: US)
  Receive Date: 20150408
  Receipt Date: 20150415
  Transmission Date: 20150821
  Serious: No
  Sender: FDA-Public Use
  Company Number: US-PFIZER INC-2015120274

PATIENT
  Age: 68 Year
  Sex: Female
  Weight: 55 kg

DRUGS (1)
  1. ZITHROMAX [Suspect]
     Active Substance: AZITHROMYCIN DIHYDRATE
     Indication: BRONCHITIS
     Dosage: 250 MG, (2 ON DAY ONE, THEN 1 TABLET FROM THEN ON)
     Dates: start: 20150330

REACTIONS (1)
  - Abdominal distension [Not Recovered/Not Resolved]

NARRATIVE: CASE EVENT DATE: 20150330
